FAERS Safety Report 12414795 (Version 1)
Quarter: 2016Q2

REPORT INFORMATION
  Report Type: Report from Study
  Country: BR (occurrence: BR)
  Receive Date: 20160529
  Receipt Date: 20160529
  Transmission Date: 20160815
  Serious: Yes (Life-Threatening)
  Sender: FDA-Public Use
  Company Number: PHHY2016BR072341

PATIENT
  Sex: Female
  Weight: 72 kg

DRUGS (1)
  1. FORASEQ [Suspect]
     Active Substance: BUDESONIDE\FORMOTEROL FUMARATE
     Indication: DYSPNOEA
     Dosage: 4 DF (12 MCG FORMOTEROL FUMARATE/400 MCG BUDESONIDE, (60 CAPSULES)), QD
     Route: 055

REACTIONS (4)
  - Stress [Unknown]
  - Apparent death [Unknown]
  - Product use issue [Unknown]
  - Nervousness [Recovering/Resolving]
